FAERS Safety Report 18901480 (Version 3)
Quarter: 2021Q1

REPORT INFORMATION
  Report Type: Report from Study
  Country: US (occurrence: US)
  Receive Date: 20210216
  Receipt Date: 20210317
  Transmission Date: 20210420
  Serious: Yes (Other)
  Sender: FDA-Public Use
  Company Number: US-ASTRAZENECA-2021A043958

PATIENT
  Age: 69 Year
  Sex: Female
  Weight: 53.1 kg

DRUGS (1)
  1. LYNPARZA [Suspect]
     Active Substance: OLAPARIB
     Indication: OVARIAN CANCER
     Route: 048
     Dates: start: 20181231, end: 20201231

REACTIONS (23)
  - Gastrointestinal disorder [Not Recovered/Not Resolved]
  - Weight decreased [Unknown]
  - Food aversion [Unknown]
  - Migraine [Unknown]
  - Vomiting [Unknown]
  - Taste disorder [Unknown]
  - Aphthous ulcer [Unknown]
  - Decreased appetite [Recovering/Resolving]
  - Constipation [Unknown]
  - Gastrointestinal motility disorder [Unknown]
  - Diabetes mellitus [Unknown]
  - Epistaxis [Recovered/Resolved]
  - Dysgeusia [Unknown]
  - Headache [Unknown]
  - Tumour marker abnormal [Unknown]
  - Diarrhoea [Unknown]
  - Illness [Unknown]
  - Neuropathy peripheral [Not Recovered/Not Resolved]
  - Breath odour [Unknown]
  - Dizziness [Unknown]
  - Aversion [Unknown]
  - Amnesia [Unknown]
  - Nausea [Unknown]

NARRATIVE: CASE EVENT DATE: 2019
